FAERS Safety Report 9011627 (Version 3)
Quarter: 2013Q1

REPORT INFORMATION
  Report Type: Spontaneous
  Country: JP (occurrence: JP)
  Receive Date: 20130108
  Receipt Date: 20130124
  Transmission Date: 20140127
  Serious: Yes (Hospitalization, Other)
  Sender: FDA-Public Use
  Company Number: JP-PFIZER INC-2013007878

PATIENT
  Age: 68 Year
  Sex: Male
  Weight: 67.8 kg

DRUGS (1)
  1. INLYTA [Suspect]
     Indication: RENAL CANCER
     Dosage: 5 MG, 2X/DAY
     Route: 048
     Dates: start: 20121207, end: 20121225

REACTIONS (1)
  - Diverticulitis [Not Recovered/Not Resolved]
